FAERS Safety Report 6901859-6 (Version None)
Quarter: 2010Q3

REPORT INFORMATION
  Report Type: 
  Country: None (occurrence: None)
  Receive Date: 20100803
  Receipt Date: 20080324
  Transmission Date: 20110219
  Serious: No
  Sender: FDA-Public Use
  Company Number: US-PFIZER INC-2008026594

PATIENT
  Sex: Female
  Weight: 111.36 kg

DRUGS (17)
  1. LYRICA [Suspect]
     Dates: start: 20071201
  2. ACIDOPHILUS [Concomitant]
  3. ATENOLOL [Concomitant]
  4. CALCIUM [Concomitant]
  5. VITAMIN B [Concomitant]
  6. CYMBALTA [Concomitant]
  7. HUMALOG [Concomitant]
  8. LANTUS [Concomitant]
  9. LASIX [Concomitant]
  10. LIPITOR [Concomitant]
  11. LISINOPRIL [Concomitant]
  12. METHADONE HCL [Concomitant]
  13. NASONEX [Concomitant]
  14. MULTIVITAMIN [Concomitant]
  15. PRILOSEC [Concomitant]
  16. BENICAR [Concomitant]
  17. TYLENOL [Concomitant]

REACTIONS (1)
  - VISION BLURRED [None]
